FAERS Safety Report 19077881 (Version 1)
Quarter: 2021Q1

REPORT INFORMATION
  Report Type: Spontaneous
  Country: US (occurrence: US)
  Receive Date: 20210331
  Receipt Date: 20210331
  Transmission Date: 20210420
  Serious: Yes (Other)
  Sender: FDA-Public Use
  Company Number: None

PATIENT
  Age: 34 Year
  Sex: Female
  Weight: 84.6 kg

DRUGS (1)
  1. COLGATE TOTAL GUM PROTECTION [Suspect]
     Active Substance: STANNOUS FLUORIDE
     Indication: ORAL DISORDER
     Dates: start: 20210315, end: 20210329

REACTIONS (4)
  - Noninfective gingivitis [None]
  - Tongue disorder [None]
  - Tongue blistering [None]
  - Burn oral cavity [None]

NARRATIVE: CASE EVENT DATE: 20210327
